FAERS Safety Report 17899474 (Version 3)
Quarter: 2022Q3

REPORT INFORMATION
  Report Type: Spontaneous
  Country: FR (occurrence: FR)
  Receive Date: 20200616
  Receipt Date: 20220713
  Transmission Date: 20221027
  Serious: Yes (Death, Hospitalization, Other)
  Sender: FDA-Public Use
  Company Number: FR-GSKCCFEMEA-CASE-00962201_AE-29893

PATIENT

DRUGS (1)
  1. VALACYCLOVIR HYDROCHLORIDE [Suspect]
     Active Substance: VALACYCLOVIR HYDROCHLORIDE
     Indication: Product used for unknown indication
     Dosage: UNK
     Dates: start: 20200423

REACTIONS (4)
  - Death [Fatal]
  - Hospitalisation [Unknown]
  - Dysphagia [Unknown]
  - Wrong technique in product usage process [Unknown]
